FAERS Safety Report 8625071-8 (Version None)
Quarter: 2012Q3

REPORT INFORMATION
  Report Type: 
  Country: None (occurrence: None)
  Receive Date: 20120827
  Receipt Date: 20120822
  Transmission Date: 20120928
  Serious: Yes (Death, Life-Threatening, Hospitalization, Disabling)
  Sender: FDA-Public Use
  Company Number: AU-CELGENEUS-008-20785-10011355

PATIENT
  Sex: Male

DRUGS (7)
  1. BACTRIM [Suspect]
     Indication: PNEUMONIA
     Route: 065
  2. VIDAZA [Suspect]
     Route: 050
     Dates: start: 20100202, end: 20100208
  3. THALIDOMIDE [Suspect]
     Route: 048
     Dates: start: 20080903, end: 20090805
  4. WHOLE BLOOD [Concomitant]
     Route: 041
  5. VIDAZA [Suspect]
     Indication: MYELODYSPLASTIC SYNDROME
     Dosage: 75 MILLIGRAM/SQ. METER
     Route: 050
     Dates: start: 20100105, end: 20100111
  6. AUGMENTIN DUO FORTE [Concomitant]
     Dosage: 2 TABLET
     Route: 048
     Dates: start: 20091012, end: 20100107
  7. MINOCYCLINE HCL [Suspect]
     Dosage: 4 TABLET
     Route: 048
     Dates: start: 20091012, end: 20100107

REACTIONS (3)
  - PNEUMONIA [None]
  - PNEUMONITIS [None]
  - STEVENS-JOHNSON SYNDROME [None]
